FAERS Safety Report 6046437-9 (Version None)
Quarter: 2009Q1

REPORT INFORMATION
  Report Type: 
  Country: None (occurrence: None)
  Receive Date: 20090122
  Receipt Date: 20090114
  Transmission Date: 20090719
  Serious: Yes (Other)
  Sender: FDA-Public Use
  Company Number: US-WYE-H07712909

PATIENT
  Age: 8 Year
  Sex: Male
  Weight: 27.24 kg

DRUGS (2)
  1. CHILDREN'S DIMETAPP COLD AND COUGH [Suspect]
     Indication: COUGH
     Dosage: 2 TSP EVERY 4 HR
     Route: 048
     Dates: start: 20090101, end: 20090101
  2. CHILDREN'S DIMETAPP COLD AND COUGH [Suspect]
     Indication: NASOPHARYNGITIS

REACTIONS (3)
  - LOSS OF CONSCIOUSNESS [None]
  - VOMITING [None]
  - WHITE BLOOD CELL COUNT INCREASED [None]
